FAERS Safety Report 10209782 (Version 1)
Quarter: 2014Q2

REPORT INFORMATION
  Report Type: Spontaneous
  Country: ES (occurrence: ES)
  Receive Date: 20140602
  Receipt Date: 20140602
  Transmission Date: 20141212
  Serious: Yes (Other)
  Sender: FDA-Public Use
  Company Number: ES-ROCHE-1408731

PATIENT
  Age: 45 Year
  Sex: Female

DRUGS (4)
  1. RIVOTRIL [Suspect]
     Indication: PRODUCT USED FOR UNKNOWN INDICATION
     Route: 065
  2. NEURONTIN (SPAIN) [Concomitant]
  3. TRANKIMAZIN [Concomitant]
  4. ORFIDAL [Concomitant]

REACTIONS (1)
  - Drug intolerance [Unknown]
